FAERS Safety Report 7867641-0 (Version None)
Quarter: 2011Q4

REPORT INFORMATION
  Report Type: 
  Country: None (occurrence: None)
  Receive Date: 20111028
  Receipt Date: 20111025
  Transmission Date: 20120403
  Serious: Yes (Death, Hospitalization, Disabling, Other)
  Sender: FDA-Public Use
  Company Number: PHHY2010CA71922

PATIENT
  Sex: Female

DRUGS (16)
  1. FERROUS GLUCONATE [Concomitant]
  2. AMITRIPTYLINE HCL [Concomitant]
     Dosage: 10 MG AT BED TIME
  3. OMEPRAZOLE [Concomitant]
  4. BISACODYL [Concomitant]
  5. CALCIUM CARBONATE [Concomitant]
  6. CYANOCOBALAMIN [Concomitant]
  7. TOLTERODINE TARTRATE [Concomitant]
  8. LACTULOSE [Concomitant]
  9. MOMETASONE FUROATE [Concomitant]
  10. DOCUSATE SODIUM [Concomitant]
  11. BUPRENORPHINE [Concomitant]
     Dosage: UNK UKN, UNK
     Route: 062
  12. COLECALCIFEROL [Concomitant]
  13. ASPIRIN [Concomitant]
     Dosage: 325 MG
     Route: 048
  14. BETAMETHASONE [Concomitant]
  15. METOPROLOL TARTRATE [Concomitant]
  16. ZOLEDRONOC ACID [Suspect]
     Indication: OSTEOPOROSIS
     Dates: start: 20081201

REACTIONS (10)
  - OSTEOPOROSIS [None]
  - ATRIAL FIBRILLATION [None]
  - INJURY [None]
  - AORTIC CALCIFICATION [None]
  - SPINAL COMPRESSION FRACTURE [None]
  - CARDIAC FAILURE CONGESTIVE [None]
  - SCOLIOSIS [None]
  - ATRIAL HYPERTROPHY [None]
  - DEMENTIA ALZHEIMER'S TYPE [None]
  - FALL [None]
